FAERS Safety Report 5113644-9 (Version None)
Quarter: 2006Q3

REPORT INFORMATION
  Report Type: 
  Country: None (occurrence: None)
  Receive Date: 20060925
  Receipt Date: 20060921
  Transmission Date: 20061208
  Serious: Yes (Death)
  Sender: FDA-Public Use
  Company Number: PHFR2006GB02863

PATIENT
  Age: 68 Year
  Sex: Male

DRUGS (7)
  1. RIVASTIGMINE [Suspect]
     Indication: PARKINSON'S DISEASE
     Dosage: 1.5MG DAILY
     Route: 048
     Dates: start: 20060815, end: 20060816
  2. AMLODIPINE [Concomitant]
     Dosage: 5MG DAILY
     Route: 048
  3. CABERGOLINE [Concomitant]
     Dosage: 2 MG, BID
     Route: 048
  4. FINASTERIDE [Concomitant]
     Dosage: 5MG DAILY
     Route: 048
  5. MADOPAR [Concomitant]
     Dosage: 1 DF, 6QD
     Route: 065
  6. QUETIAPINE [Concomitant]
     Indication: DEPRESSION
     Dosage: 25 MG, BID
     Route: 065
  7. TRIHEXYPHENIDYL HCL [Concomitant]
     Dosage: 2 MG, TID
     Route: 048

REACTIONS (2)
  - CARDIAC ARREST [None]
  - ELECTROMECHANICAL DISSOCIATION [None]
